FAERS Safety Report 8118006 (Version 3)
Quarter: 2014Q2

REPORT INFORMATION
  Report Type: Spontaneous
  Country: US (occurrence: US)
  Receive Date: 20110902
  Receipt Date: 20140521
  Transmission Date: 20141212
  Serious: No
  Sender: FDA-Public Use
  Company Number: US-PFIZER INC-2011201520

PATIENT
  Sex: Female

DRUGS (3)
  1. PRISTIQ [Suspect]
     Dosage: UNK
  2. LITHIUM [Suspect]
     Dosage: UNK
  3. SEROQUEL [Suspect]

REACTIONS (7)
  - Nausea [Unknown]
  - Headache [Unknown]
  - Hot flush [Unknown]
  - Pyrexia [Unknown]
  - Fatigue [Unknown]
  - Feeling jittery [Unknown]
  - Intentional product misuse [Unknown]
